FAERS Safety Report 22154046 (Version 2)
Quarter: 2023Q2

REPORT INFORMATION
  Report Type: Spontaneous
  Country: US (occurrence: US)
  Receive Date: 20230330
  Receipt Date: 20230413
  Transmission Date: 20230721
  Serious: Yes (Other)
  Sender: FDA-Public Use
  Company Number: US-TEVA-2023-US-2869991

PATIENT
  Age: 65 Year
  Sex: Female

DRUGS (20)
  1. PREDNISONE [Suspect]
     Active Substance: PREDNISONE
     Indication: Systemic lupus erythematosus
     Dosage: 5 MILLIGRAM DAILY; ONCE A DAY
     Route: 065
  2. METHOTREXATE [Suspect]
     Active Substance: METHOTREXATE
     Indication: Systemic lupus erythematosus
     Route: 065
  3. THALIDOMIDE [Suspect]
     Active Substance: THALIDOMIDE
     Indication: Systemic lupus erythematosus
     Route: 065
  4. ROZEREM [Suspect]
     Active Substance: RAMELTEON
     Indication: Systemic lupus erythematosus
     Route: 065
  5. CELLCEPT [Suspect]
     Active Substance: MYCOPHENOLATE MOFETIL
     Indication: Systemic lupus erythematosus
     Route: 065
  6. PLAQUENIL [Suspect]
     Active Substance: HYDROXYCHLOROQUINE SULFATE
     Indication: Systemic lupus erythematosus
     Route: 065
  7. BENLYSTA [Suspect]
     Active Substance: BELIMUMAB
     Indication: Systemic lupus erythematosus
     Route: 065
  8. IMURAN [Suspect]
     Active Substance: AZATHIOPRINE
     Indication: Systemic lupus erythematosus
     Route: 065
  9. MIACALCIN [Suspect]
     Active Substance: CALCITONIN SALMON
     Indication: Systemic lupus erythematosus
     Route: 065
  10. ACTONEL [Suspect]
     Active Substance: RISEDRONATE SODIUM
     Indication: Systemic lupus erythematosus
     Route: 065
  11. RITUXIMAB [Suspect]
     Active Substance: RITUXIMAB
     Indication: Systemic lupus erythematosus
     Route: 065
  12. COVID-19 VACCINE NOS [Suspect]
     Active Substance: COVID-19 VACCINE NOS
     Indication: COVID-19 immunisation
     Route: 065
  13. FOLIC ACID [Concomitant]
     Active Substance: FOLIC ACID
     Indication: Systemic lupus erythematosus
     Dosage: 1 MILLIGRAM DAILY; ONCE A DAY
     Route: 065
  14. HYDROCHLOROTHIAZIDE [Concomitant]
     Active Substance: HYDROCHLOROTHIAZIDE
     Indication: Systemic lupus erythematosus
     Dosage: 25 MILLIGRAM DAILY; ONCE A DAY
     Route: 065
  15. PROPRANOLOL [Concomitant]
     Active Substance: PROPRANOLOL HYDROCHLORIDE
     Indication: Systemic lupus erythematosus
     Dosage: 20 MILLIGRAM DAILY; 10 MG TWICE A DAY
     Route: 065
  16. TRAZODONE [Concomitant]
     Active Substance: TRAZODONE HYDROCHLORIDE
     Indication: Systemic lupus erythematosus
     Dosage: 50 MILLIGRAM DAILY; ONCE A DAY
     Route: 065
  17. CEVIMELINE [Concomitant]
     Active Substance: CEVIMELINE
     Indication: Systemic lupus erythematosus
     Dosage: 30 MILLIGRAM DAILY; ONCE A DAY
     Route: 065
  18. ESOMEPRAZOLE [Concomitant]
     Active Substance: ESOMEPRAZOLE
     Indication: Systemic lupus erythematosus
     Dosage: 40 MILLIGRAM DAILY; ONCE A DAY
     Route: 065
  19. ACETAMINOPHEN [Concomitant]
     Active Substance: ACETAMINOPHEN
     Indication: Systemic lupus erythematosus
     Dosage: 650 MILLIGRAM DAILY; ONCE A DAY
     Route: 065
  20. Conjugated-estrogens [Concomitant]
     Indication: Systemic lupus erythematosus
     Dosage: .9 MILLIGRAM DAILY; ONCE A DAY
     Route: 065

REACTIONS (11)
  - Influenza like illness [Unknown]
  - Chest pain [Unknown]
  - Hypotension [Unknown]
  - Drug ineffective [Unknown]
  - Headache [Unknown]
  - Nausea [Unknown]
  - Vomiting [Unknown]
  - Personality change [Unknown]
  - Dizziness [Unknown]
  - Epistaxis [Unknown]
  - Vaccination failure [Unknown]
